FAERS Safety Report 7658831-0 (Version None)
Quarter: 2011Q3

REPORT INFORMATION
  Report Type: 
  Country: None (occurrence: None)
  Receive Date: 20110805
  Receipt Date: 20110802
  Transmission Date: 20111222
  Serious: Yes (Death, Other)
  Sender: FDA-Public Use
  Company Number: JP-SANOFI-AVENTIS-2011SA040567

PATIENT
  Age: 70 Year
  Sex: Male
  Weight: 56.6 kg

DRUGS (7)
  1. DECADRON [Concomitant]
     Indication: PROPHYLAXIS
     Dates: start: 20110607, end: 20110607
  2. TAXOTERE [Suspect]
     Indication: PROSTATE CANCER
     Route: 041
     Dates: start: 20110607, end: 20110607
  3. ETHINYL ESTRADIOL [Concomitant]
     Indication: PROSTATE CANCER
     Route: 048
     Dates: start: 20110328, end: 20110620
  4. ZOLEDRONIC ACID [Concomitant]
     Indication: OSTEOPOROSIS
     Route: 042
     Dates: start: 20110607, end: 20110607
  5. SEROTONE [Concomitant]
     Indication: PROPHYLAXIS
     Dates: start: 20110607, end: 20110607
  6. ALL OTHER THERAPEUTIC PRODUCTS [Concomitant]
     Route: 048
     Dates: start: 20091215, end: 20110620
  7. ZOLADEX [Concomitant]
     Indication: PROSTATE CANCER
     Dosage: EVERY 3 MONTHS
     Route: 058
     Dates: start: 20060518, end: 20110530

REACTIONS (4)
  - PYREXIA [None]
  - PLATELET COUNT DECREASED [None]
  - WHITE BLOOD CELL COUNT DECREASED [None]
  - INTERSTITIAL LUNG DISEASE [None]
